FAERS Safety Report 10897936 (Version 1)
Quarter: 2015Q1

REPORT INFORMATION
  Report Type: Spontaneous
  Country: US (occurrence: None)
  Receive Date: 20150302
  Receipt Date: 20150302
  Transmission Date: 20150721
  Serious: Yes (Life-Threatening, Hospitalization)
  Sender: FDA-Public Use
  Company Number: None

PATIENT
  Age: 79 Year
  Sex: Male
  Weight: 95.26 kg

DRUGS (12)
  1. BRILINTA [Suspect]
     Active Substance: TICAGRELOR
     Indication: CORONARY ARTERIAL STENT INSERTION
     Dosage: 2 PILL ONCE DAILY TAKEN BY MOUTH
     Route: 048
     Dates: start: 20150224, end: 20150224
  2. METFORMIN [Concomitant]
     Active Substance: METFORMIN HYDROCHLORIDE
  3. GENUVIA [Concomitant]
  4. LOSARTIN [Concomitant]
     Active Substance: LOSARTAN
  5. TOPROL XL [Concomitant]
     Active Substance: METOPROLOL SUCCINATE
  6. LIPITOR [Concomitant]
     Active Substance: ATORVASTATIN CALCIUM
  7. FISH OIL [Concomitant]
     Active Substance: FISH OIL
  8. BABY ASPIRIN [Concomitant]
     Active Substance: ASPIRIN
  9. PLAVIX [Concomitant]
     Active Substance: CLOPIDOGREL BISULFATE
  10. LASIX [Concomitant]
     Active Substance: FUROSEMIDE
  11. MAGNESIUM [Concomitant]
     Active Substance: MAGNESIUM
  12. PANTAPROSOL [Concomitant]

REACTIONS (5)
  - Flushing [None]
  - Extrasystoles [None]
  - Head injury [None]
  - Erythema [None]
  - Haemorrhage [None]

NARRATIVE: CASE EVENT DATE: 20150224
